FAERS Safety Report 4851756-5 (Version None)
Quarter: 2005Q4

REPORT INFORMATION
  Report Type: 
  Country: None (occurrence: None)
  Receive Date: 20051209
  Receipt Date: 20051124
  Transmission Date: 20060501
  Serious: Yes (Other)
  Sender: FDA-Public Use
  Company Number: S05-CAN-05623-01

PATIENT
  Age: 64 Year
  Sex: Female

DRUGS (1)
  1. CELEXA [Suspect]
     Dosage: 20 MG QD PO
     Route: 048

REACTIONS (2)
  - HYPOCHLORAEMIA [None]
  - HYPONATRAEMIA [None]
